FAERS Safety Report 14742400 (Version 2)
Quarter: 2018Q2

REPORT INFORMATION
  Report Type: Other
  Country: GB (occurrence: GB)
  Receive Date: 20180410
  Receipt Date: 20180421
  Transmission Date: 20180711
  Serious: Yes (Hospitalization, Other)
  Sender: FDA-Public Use
  Company Number: GB-RARE DISEASE THERAPEUTICS, INC.-2045487

PATIENT
  Age: 79 Year
  Sex: Male

DRUGS (8)
  1. SULFASALAZINE. [Suspect]
     Active Substance: SULFASALAZINE
     Route: 065
  2. PREDSOL [Suspect]
     Active Substance: PREDNISOLONE
  3. PREDSOL-N [Suspect]
     Active Substance: NEOMYCIN SULFATE\PREDNISOLONE SODIUM PHOSPHATE
     Route: 065
  4. MESALAZINE [Suspect]
     Active Substance: MESALAMINE
     Route: 065
  5. PURIXAN [Suspect]
     Active Substance: MERCAPTOPURINE
     Indication: CROHN^S DISEASE
     Route: 065
  6. MERCAPTAMINE [Suspect]
     Active Substance: CYSTEAMINE
     Route: 065
  7. PREDNISOLONE. [Suspect]
     Active Substance: PREDNISOLONE
     Route: 065
  8. AZATHIOPRINE. [Suspect]
     Active Substance: AZATHIOPRINE
     Route: 065

REACTIONS (10)
  - Small intestinal stenosis [Unknown]
  - Gastrointestinal disorder [Unknown]
  - Normocytic anaemia [Unknown]
  - Hypoalbuminaemia [Unknown]
  - Weight decreased [Unknown]
  - Laceration [Unknown]
  - Fall [Unknown]
  - Intestinal diaphragm disease [Unknown]
  - Off label use [None]
  - Small intestinal obstruction [Unknown]
